FAERS Safety Report 7515401-2 (Version None)
Quarter: 2011Q2

REPORT INFORMATION
  Report Type: 
  Country: None (occurrence: None)
  Receive Date: 20110601
  Receipt Date: 20100601
  Transmission Date: 20111010
  Serious: No
  Sender: FDA-Public Use
  Company Number: US-PFIZER INC-2010068949

PATIENT
  Sex: Female
  Weight: 104 kg

DRUGS (3)
  1. XANAX [Suspect]
     Dosage: UNK
  2. CHANTIX [Suspect]
     Indication: SMOKING CESSATION THERAPY
     Dosage: 1MG, 2X/DAY,
     Route: 048
     Dates: start: 20100501
  3. ADDERALL 10 [Concomitant]
     Dosage: UNK

REACTIONS (5)
  - FEELING ABNORMAL [None]
  - ABNORMAL DREAMS [None]
  - CRYING [None]
  - INSOMNIA [None]
  - PANIC ATTACK [None]
